FAERS Safety Report 15488742 (Version 2)
Quarter: 2018Q4

REPORT INFORMATION
  Report Type: Report from Study
  Country: US (occurrence: US)
  Receive Date: 20181011
  Receipt Date: 20181119
  Transmission Date: 20190205
  Serious: Yes (Hospitalization)
  Sender: FDA-Public Use
  Company Number: US-IPSEN BIOPHARMACEUTICALS, INC.-2018-15377

PATIENT
  Age: 67 Year
  Sex: Male

DRUGS (12)
  1. BACLOFEN. [Concomitant]
     Active Substance: BACLOFEN
  2. GABAPENTIN. [Concomitant]
     Active Substance: GABAPENTIN
     Dosage: QD PRN.
     Route: 048
  3. AMPYRA [Concomitant]
     Active Substance: DALFAMPRIDINE
     Dosage: 10 MG TABLET EXTENDED RELEASE (APPROXIMATELY 12 HOURS APART). MAY BE TAKEN WITH OR WITHOUT FOOD.
  4. DYSPORT [Suspect]
     Active Substance: ABOBOTULINUMTOXINA
     Indication: MUSCLE SPASTICITY
  5. OXCARBAZEPINE. [Concomitant]
     Active Substance: OXCARBAZEPINE
     Route: 048
  6. DYSPORT [Suspect]
     Active Substance: ABOBOTULINUMTOXINA
     Indication: MULTIPLE SCLEROSIS
     Route: 058
     Dates: start: 20180625, end: 20180625
  7. TAMSULOSIN [Concomitant]
     Active Substance: TAMSULOSIN
     Route: 048
  8. DYSPORT [Suspect]
     Active Substance: ABOBOTULINUMTOXINA
     Indication: OFF LABEL USE
  9. TYSABRI [Concomitant]
     Active Substance: NATALIZUMAB
     Dosage: 300 MG/15 ML CONCENTRATE
     Route: 042
  10. VITAMIN D3 [Concomitant]
     Active Substance: CHOLECALCIFEROL
     Dosage: 1000 INITIAL UNITS.
     Route: 048
  11. ALCLOMETASONE [Concomitant]
     Active Substance: ALCLOMETASONE
     Dosage: 0.05 % ONE APPLICATION
     Route: 061
  12. KETOCONAZOLE. [Concomitant]
     Active Substance: KETOCONAZOLE
     Dosage: ONE APPLICATION APPLIED.
     Route: 061

REACTIONS (2)
  - Urinary tract infection [Recovered/Resolved]
  - Intentional product use issue [Unknown]

NARRATIVE: CASE EVENT DATE: 20180924
